FAERS Safety Report 4271226-5 (Version None)
Quarter: 2004Q1

REPORT INFORMATION
  Report Type: 
  Country: None (occurrence: None)
  Receive Date: 20040113
  Receipt Date: 20040108
  Transmission Date: 20041129
  Serious: Yes (Death, Hospitalization)
  Sender: FDA-Public Use
  Company Number: F01200200128

PATIENT
  Age: 64 Year
  Sex: Male

DRUGS (3)
  1. (OXALIPLATIN) - SOLUTION - 85 MG/M2 [Suspect]
     Indication: COLORECTAL CANCER METASTATIC
     Dosage: 85 MG/M2
     Route: 042
     Dates: start: 20020429, end: 20020429
  2. FLUOROURACIL [Suspect]
     Dosage: (400 MG/M2 AS BOLUS THEN 600 MG/M2 AS 22-HOUR CONTINUOUS INFUSION) ON D1, D2, Q2W
     Route: 042
     Dates: start: 20020429, end: 20020429
  3. LEUCOVORIN CALCIUM [Suspect]
     Dosage: 200 MG/M2
     Route: 042
     Dates: start: 20020429, end: 20020429

REACTIONS (3)
  - ADRENAL MASS [None]
  - LYMPHADENOPATHY [None]
  - PNEUMONIA BACTERIAL [None]
